FAERS Safety Report 6443971-4 (Version None)
Quarter: 2009Q4

REPORT INFORMATION
  Report Type: 
  Country: None (occurrence: None)
  Receive Date: 20091116
  Receipt Date: 20091116
  Transmission Date: 20100525
  Serious: Yes (Life-Threatening, Hospitalization, Disabling)
  Sender: FDA-Public Use
  Company Number: None

PATIENT
  Age: 28 Year
  Sex: Female
  Weight: 70.3075 kg

DRUGS (1)
  1. MIRENA [Suspect]
     Indication: FOCAL NODULAR HYPERPLASIA
     Dosage: 1 INSERT GOOD FOR 5 YEARS INTRA-UTERINE
     Route: 015
     Dates: start: 20091106

REACTIONS (3)
  - PROCEDURAL PAIN [None]
  - STRESS [None]
  - UTERINE PERFORATION [None]
